FAERS Safety Report 10994691 (Version 1)
Quarter: 2015Q2

REPORT INFORMATION
  Report Type: Spontaneous
  Country: US (occurrence: US)
  Receive Date: 20150407
  Receipt Date: 20150407
  Transmission Date: 20150821
  Serious: No
  Sender: FDA-Public Use
  Company Number: US-PFIZER INC-2015117321

PATIENT

DRUGS (2)
  1. LYRICA [Suspect]
     Active Substance: PREGABALIN
     Dosage: UNK
  2. REMERON [Suspect]
     Active Substance: MIRTAZAPINE
     Dosage: UNK

REACTIONS (1)
  - Weight increased [Unknown]
